FAERS Safety Report 12119018 (Version 1)
Quarter: 2016Q1

REPORT INFORMATION
  Report Type: Spontaneous
  Country: US (occurrence: None)
  Receive Date: 20160225
  Receipt Date: 20160225
  Transmission Date: 20160526
  Serious: Yes (Disabling)
  Sender: FDA-Public Use
  Company Number: None

PATIENT
  Age: 67 Year
  Sex: Female
  Weight: 56.7 kg

DRUGS (5)
  1. IMITRIX [Concomitant]
  2. TRAMADOL. [Concomitant]
     Active Substance: TRAMADOL
  3. ZOCOR [Concomitant]
     Active Substance: SIMVASTATIN
  4. BOTOX [Suspect]
     Active Substance: ONABOTULINUMTOXINA
     Indication: MIGRAINE
     Dosage: GIVEN INTO/UNDER THE SKIN
     Dates: start: 20160115
  5. ZYRTEC [Concomitant]
     Active Substance: CETIRIZINE HYDROCHLORIDE

REACTIONS (7)
  - Neck pain [None]
  - Hypoaesthesia [None]
  - Vision blurred [None]
  - Influenza like illness [None]
  - Dyspnoea [None]
  - Dysphagia [None]
  - Asthenia [None]

NARRATIVE: CASE EVENT DATE: 20160115
